FAERS Safety Report 19929248 (Version 1)
Quarter: 2021Q4

REPORT INFORMATION
  Report Type: Spontaneous
  Country: FR (occurrence: FR)
  Receive Date: 20211007
  Receipt Date: 20211007
  Transmission Date: 20220303
  Serious: Yes (Hospitalization)
  Sender: FDA-Public Use
  Company Number: None

PATIENT
  Age: 81 Year
  Sex: Male

DRUGS (9)
  1. VALACYCLOVIR HYDROCHLORIDE [Suspect]
     Active Substance: VALACYCLOVIR HYDROCHLORIDE
     Indication: Prophylaxis
     Dosage: 500MG 2/J
     Route: 048
     Dates: start: 20210331, end: 20210508
  2. REVLIMID [Suspect]
     Active Substance: LENALIDOMIDE
     Indication: Plasma cell myeloma
     Dosage: PRISE PENDANT 21J PUIS PAUSE DE 7J
     Route: 048
     Dates: start: 20210331, end: 20210508
  3. ATOVAQUONE [Suspect]
     Active Substance: ATOVAQUONE
     Indication: Prophylaxis
     Dosage: 1 DOSAGE FORM, QD
     Route: 048
     Dates: start: 20210331, end: 20210508
  4. DEXAMETHASONE ACETATE [Suspect]
     Active Substance: DEXAMETHASONE ACETATE
     Indication: Plasma cell myeloma
     Dosage: 20 MILLIGRAM, QW
     Route: 048
     Dates: start: 20210331, end: 20210508
  5. ESOMEPRAZOLE. [Concomitant]
     Active Substance: ESOMEPRAZOLE MAGNESIUM
     Dosage: DOSE NON RENSEIGN?E
     Route: 048
     Dates: start: 20210331
  6. EZETIMIBE [Concomitant]
     Active Substance: EZETIMIBE
     Dosage: UNK
  7. KARDEGIC [Concomitant]
     Active Substance: ASPIRIN DL-LYSINE
     Indication: Dyspepsia
     Dosage: UNK
  8. BISOPROLOL [Concomitant]
     Active Substance: BISOPROLOL
     Dosage: UNK
  9. ATORVASTATIN [Concomitant]
     Active Substance: ATORVASTATIN
     Dosage: UNK

REACTIONS (1)
  - Drug reaction with eosinophilia and systemic symptoms [Recovering/Resolving]

NARRATIVE: CASE EVENT DATE: 20210502
